FAERS Safety Report 6244051-3 (Version None)
Quarter: 2009Q2

REPORT INFORMATION
  Report Type: 
  Country: None (occurrence: None)
  Receive Date: 20090619
  Receipt Date: 20090519
  Transmission Date: 20091009
  Serious: No
  Sender: FDA-Public Use
  Company Number: SPV1-2009-00991

PATIENT
  Age: 70 Year
  Sex: Female

DRUGS (4)
  1. VYVANSE [Suspect]
     Indication: ATTENTION DEFICIT/HYPERACTIVITY DISORDER
     Dosage: 20 MG, 1X/DAY:QD, ORAL
     Route: 048
     Dates: start: 20080101, end: 20090301
  2. LEXAPRO [Suspect]
     Indication: DEPRESSION
     Dosage: 20 MG, 1X/DAY:QD, ORAL
     Route: 048
     Dates: start: 20060101
  3. CALCIUM (CALCIUM) [Concomitant]
  4. VITAMIN D NOS (VITAMIN D NOS) [Concomitant]

REACTIONS (2)
  - PRURITUS [None]
  - RASH [None]
